FAERS Safety Report 20169114 (Version 6)
Quarter: 2022Q1

REPORT INFORMATION
  Report Type: Spontaneous
  Country: JP (occurrence: JP)
  Receive Date: 20211210
  Receipt Date: 20220314
  Transmission Date: 20220423
  Serious: Yes (Hospitalization, Other)
  Sender: FDA-Public Use
  Company Number: JP-ONO-2021JP030888

PATIENT
  Age: 70 Year
  Sex: Female

DRUGS (4)
  1. OPDIVO [Suspect]
     Active Substance: NIVOLUMAB
     Indication: Non-small cell lung cancer recurrent
     Dosage: UNK
     Route: 041
  2. YERVOY [Suspect]
     Active Substance: IPILIMUMAB
     Indication: Non-small cell lung cancer recurrent
     Dosage: UNK
     Route: 041
  3. CARBOPLATIN [Suspect]
     Active Substance: CARBOPLATIN
     Indication: Non-small cell lung cancer recurrent
     Dosage: UNK
     Route: 065
  4. PEMETREXED [Suspect]
     Active Substance: PEMETREXED
     Indication: Non-small cell lung cancer recurrent
     Dosage: UNK
     Route: 065

REACTIONS (12)
  - Thyroiditis subacute [Unknown]
  - Thrombocytopenia [Unknown]
  - Autoimmune disorder [Unknown]
  - Hypoxia [Unknown]
  - Pulmonary oedema [Unknown]
  - Melaena [Unknown]
  - Embolism [Unknown]
  - Adrenal insufficiency [Unknown]
  - Pleural effusion [Unknown]
  - Orthostatic hypotension [Unknown]
  - Rash [Unknown]
  - Hyponatraemia [Unknown]
